FAERS Safety Report 17433719 (Version 1)
Quarter: 2020Q1

REPORT INFORMATION
  Report Type: Spontaneous
  Country: US (occurrence: US)
  Receive Date: 20200217
  Receipt Date: 20200217
  Transmission Date: 20200409
  Serious: No
  Sender: FDA-Public Use
  Company Number: None

PATIENT
  Age: 53 Year
  Sex: Male
  Weight: 96.75 kg

DRUGS (4)
  1. CITALOPRAM [Concomitant]
     Active Substance: CITALOPRAM HYDROBROMIDE
  2. PROPRANOLOL [Concomitant]
     Active Substance: PROPRANOLOL HYDROCHLORIDE
  3. OMEPRAZOLE. [Concomitant]
     Active Substance: OMEPRAZOLE
  4. SENSODYNE PRONAMEL GENTLE WHITENING [Suspect]
     Active Substance: POTASSIUM NITRATE\SODIUM FLUORIDE
     Indication: DENTAL CLEANING
     Dosage: ?          QUANTITY:6.5 OUNCE(S);OTHER ROUTE:APPLY TO TEETH NO MORE THAN THREE TIMES/?
     Dates: start: 20191102, end: 20191102

REACTIONS (8)
  - Glossitis [None]
  - Pharyngeal inflammation [None]
  - Pain [None]
  - Noninfective gingivitis [None]
  - Oral discomfort [None]
  - Taste disorder [None]
  - Discomfort [None]
  - Throat irritation [None]

NARRATIVE: CASE EVENT DATE: 20191102
